FAERS Safety Report 4345864-5 (Version None)
Quarter: 2004Q2

REPORT INFORMATION
  Report Type: 
  Country: None (occurrence: None)
  Receive Date: 20040421
  Receipt Date: 20040408
  Transmission Date: 20050107
  Serious: Yes (Life-Threatening, Hospitalization)
  Sender: FDA-Public Use
  Company Number: 2004020908

PATIENT
  Age: 19 Year
  Sex: Male
  Weight: 114 kg

DRUGS (13)
  1. DIFLUCAN [Suspect]
     Indication: CANDIDA SEPSIS
     Dosage: INTRAVENOUS
     Route: 042
     Dates: start: 20040305, end: 20040309
  2. HEPARIN-FRACTION, SODIUM SALT [Concomitant]
  3. OMEPRAZOLE [Concomitant]
  4. METOPROLOL SUCCINATE [Concomitant]
  5. ACETAMINOPHEN [Concomitant]
  6. CLAVULIN (AMOXICILLIN TRIHYDRATE, CLAVULANATE POTASSIUM) [Concomitant]
  7. DRUG, UNSPECIFIED [Concomitant]
  8. AMIKACIN SULFATE [Concomitant]
  9. BUMETANIDE [Concomitant]
  10. VANCOMYCIN [Concomitant]
  11. DOBUTAMINE [Concomitant]
  12. CORTICOSTEROIDS [Concomitant]
  13. DRUG, UNSPECIFIED [Concomitant]

REACTIONS (10)
  - ARRHYTHMIA [None]
  - BRADYCARDIA [None]
  - PNEUMONIA [None]
  - POST PROCEDURAL COMPLICATION [None]
  - PULMONARY OEDEMA [None]
  - SINUS RHYTHM [None]
  - TORSADE DE POINTES [None]
  - VENTRICULAR EXTRASYSTOLES [None]
  - VENTRICULAR FIBRILLATION [None]
  - VENTRICULAR TACHYCARDIA [None]
